FAERS Safety Report 9374969 (Version 1)
Quarter: 2013Q2

REPORT INFORMATION
  Report Type: Report from Study
  Country: CA (occurrence: CA)
  Receive Date: 20130628
  Receipt Date: 20130628
  Transmission Date: 20140414
  Serious: Yes (Other)
  Sender: FDA-Public Use
  Company Number: CA-JNJFOC-20130617918

PATIENT
  Age: 45 Year
  Sex: Female
  Weight: 48.99 kg

DRUGS (1)
  1. STELARA [Suspect]
     Indication: PSORIASIS
     Dosage: 45 MG AT WEEK 0,4, THEN EVERY 12 WEEKS
     Route: 058
     Dates: start: 20130527

REACTIONS (1)
  - Cellulitis [Unknown]
